FAERS Safety Report 22218642 (Version 1)
Quarter: 2023Q2

REPORT INFORMATION
  Report Type: Spontaneous
  Country: US (occurrence: US)
  Receive Date: 20230417
  Receipt Date: 20230417
  Transmission Date: 20230722
  Serious: No
  Sender: FDA-Public Use
  Company Number: US-ELI_LILLY_AND_COMPANY-US202304006342

PATIENT
  Sex: Female

DRUGS (2)
  1. TRULICITY [Suspect]
     Active Substance: DULAGLUTIDE
     Indication: Product used for unknown indication
     Dosage: UNK UNK, UNKNOWN
     Route: 065
     Dates: start: 202012
  2. TRULICITY [Suspect]
     Active Substance: DULAGLUTIDE
     Dosage: UNK MG, UNKNOWN
     Route: 065

REACTIONS (2)
  - Dyspepsia [Unknown]
  - Fatigue [Unknown]
